FAERS Safety Report 9269432 (Version 1)
Quarter: 2013Q2

REPORT INFORMATION
  Report Type: Spontaneous
  Country: US (occurrence: US)
  Receive Date: 20130503
  Receipt Date: 20130503
  Transmission Date: 20140414
  Serious: No
  Sender: FDA-Public Use
  Company Number: US-BAYER-2013-054333

PATIENT
  Sex: Male

DRUGS (5)
  1. BETASERON [Suspect]
     Dosage: 0.25 MG, QOD
     Route: 058
  2. BACLOFEN [Concomitant]
     Dosage: 10 MG, UNK
  3. FISH OIL [Concomitant]
  4. COQ10 [Concomitant]
     Dosage: 100 MG, UNK
  5. NEXIUM [Concomitant]
     Dosage: 20 MG, UNK

REACTIONS (1)
  - Injection site erythema [Unknown]
